FAERS Safety Report 12960343 (Version 1)
Quarter: 2016Q4

REPORT INFORMATION
  Report Type: Spontaneous
  Country: US (occurrence: US)
  Receive Date: 20161120
  Receipt Date: 20161120
  Transmission Date: 20170207
  Serious: Yes (Other)
  Sender: FDA-Public Use
  Company Number: None

PATIENT
  Age: 74 Year
  Sex: Female
  Weight: 85.5 kg

DRUGS (9)
  1. LOPRESSOR [Concomitant]
     Active Substance: METOPROLOL TARTRATE
  2. BABY ASA [Concomitant]
     Active Substance: ASPIRIN
  3. LEVOFLOXACIN. [Suspect]
     Active Substance: LEVOFLOXACIN
     Indication: SINUSITIS
     Dosage: 7 1/2 500 MG TAB DAILY
     Route: 048
     Dates: start: 20161101, end: 20161113
  4. DIOVAN [Concomitant]
     Active Substance: VALSARTAN
  5. LIDOCAINE PATCH [Concomitant]
     Active Substance: LIDOCAINE
  6. LIPITOR [Concomitant]
     Active Substance: ATORVASTATIN CALCIUM
  7. TYLENOL [Concomitant]
     Active Substance: ACETAMINOPHEN
  8. OXYCODONE [Concomitant]
     Active Substance: OXYCODONE
  9. VIT. D3 [Concomitant]

REACTIONS (4)
  - Product quality issue [None]
  - Neck pain [None]
  - Musculoskeletal pain [None]
  - Arthralgia [None]

NARRATIVE: CASE EVENT DATE: 20161105
